FAERS Safety Report 19920745 (Version 1)
Quarter: 2021Q4

REPORT INFORMATION
  Report Type: Spontaneous
  Country: US (occurrence: US)
  Receive Date: 20211005
  Receipt Date: 20211005
  Transmission Date: 20220303
  Serious: No
  Sender: FDA-Public Use
  Company Number: US-GLENMARK PHARMACEUTICALS-2021GMK066514

PATIENT

DRUGS (1)
  1. GABAPENTIN [Suspect]
     Active Substance: GABAPENTIN
     Indication: Neuralgia
     Dosage: UNK
     Route: 065

REACTIONS (9)
  - Illness [Unknown]
  - Formication [Unknown]
  - Adverse drug reaction [Unknown]
  - Sensory disturbance [Unknown]
  - Product administration error [Unknown]
  - Feeling abnormal [Unknown]
  - Product quality issue [Unknown]
  - Product physical issue [Unknown]
  - Product substitution issue [Unknown]
